FAERS Safety Report 4350621-X (Version None)
Quarter: 2004Q2

REPORT INFORMATION
  Report Type: 
  Country: None (occurrence: None)
  Receive Date: 20040427
  Receipt Date: 20040419
  Transmission Date: 20050107
  Serious: Yes (Life-Threatening, Hospitalization)
  Sender: FDA-Public Use
  Company Number: STA-AE-04-MTX-012

PATIENT
  Age: 84 Year
  Sex: Female

DRUGS (1)
  1. RHEUMATREX [Suspect]
     Indication: RHEUMATOID ARTHRITIS
     Dosage: 2 MG 1X PER 1 WK, ORAL
     Route: 048
     Dates: start: 20030926, end: 20031222

REACTIONS (16)
  - ANOREXIA [None]
  - BLOOD LACTATE DEHYDROGENASE INCREASED [None]
  - BLOOD PH INCREASED [None]
  - BLOOD UREA INCREASED [None]
  - HYPOXIA [None]
  - INTERSTITIAL LUNG DISEASE [None]
  - LUNG INFECTION [None]
  - NAUSEA [None]
  - NEUTROPHIL PERCENTAGE INCREASED [None]
  - OEDEMA PERIPHERAL [None]
  - PCO2 DECREASED [None]
  - PLEURAL EFFUSION [None]
  - PRODUCTIVE COUGH [None]
  - PYREXIA [None]
  - URINARY TRACT INFECTION [None]
  - WHITE BLOOD CELL COUNT INCREASED [None]
